FAERS Safety Report 11319555 (Version 1)
Quarter: 2015Q3

REPORT INFORMATION
  Report Type: Report from Study
  Country: US (occurrence: US)
  Receive Date: 20150729
  Receipt Date: 20150729
  Transmission Date: 20151125
  Serious: Yes (Hospitalization)
  Sender: FDA-Public Use
  Company Number: US-GILEAD-2015-0165380

PATIENT
  Age: 59 Year
  Sex: Female

DRUGS (2)
  1. AMBRISENTAN [Suspect]
     Active Substance: AMBRISENTAN
     Indication: PRODUCT USED FOR UNKNOWN INDICATION
     Dosage: 5 MG, QD
     Route: 065
     Dates: start: 20130920
  2. TYVASO [Concomitant]
     Active Substance: TREPROSTINIL

REACTIONS (6)
  - Dizziness [Unknown]
  - Eyelid margin crusting [Unknown]
  - Dyspnoea [Unknown]
  - Ocular hyperaemia [Unknown]
  - Heart rate increased [Unknown]
  - Conjunctivitis [Unknown]
